FAERS Safety Report 6599593-8 (Version None)
Quarter: 2010Q1

REPORT INFORMATION
  Report Type: 
  Country: None (occurrence: None)
  Receive Date: 20100224
  Receipt Date: 20100212
  Transmission Date: 20100710
  Serious: Yes (Other)
  Sender: FDA-Public Use
  Company Number: JP-JNJFOC-20091206326

PATIENT
  Sex: Female
  Weight: 49 kg

DRUGS (11)
  1. DOXORUBICIN HCL [Suspect]
     Indication: OVARIAN CANCER RECURRENT
     Dosage: CYCLE 2
     Route: 042
  2. DOXORUBICIN HCL [Suspect]
     Dosage: CYCLE 1
     Route: 042
  3. DOXORUBICIN HCL [Suspect]
     Dosage: CYCLE 3
     Route: 042
  4. DECADRON [Concomitant]
     Indication: PROPHYLAXIS
     Route: 048
  5. DECADRON [Concomitant]
     Route: 048
  6. DECADRON [Concomitant]
     Route: 048
  7. DECADRON [Concomitant]
     Route: 048
  8. KYTRIL [Concomitant]
     Indication: PROPHYLAXIS
     Route: 042
  9. KYTRIL [Concomitant]
     Route: 042
  10. DECADRON [Concomitant]
     Route: 042
  11. DECADRON [Concomitant]
     Route: 042

REACTIONS (4)
  - HEADACHE [None]
  - MALAISE [None]
  - PYREXIA [None]
  - WHITE BLOOD CELL COUNT DECREASED [None]
